FAERS Safety Report 10174819 (Version 1)
Quarter: 2014Q2

REPORT INFORMATION
  Report Type: Spontaneous
  Country: US (occurrence: US)
  Receive Date: 20140515
  Receipt Date: 20140515
  Transmission Date: 20141212
  Serious: No
  Sender: FDA-Public Use
  Company Number: US-B.I. PHARMACEUTICALS,INC./RIDGEFIELD-2014-BI-20369BP

PATIENT
  Sex: Female

DRUGS (7)
  1. COMBIVENT [Suspect]
     Indication: CHRONIC OBSTRUCTIVE PULMONARY DISEASE
     Dosage: STRENGTH: 20 MCG / 100 MCG; DAILY DOSE: 80 MCG/400 MCG
     Route: 055
     Dates: start: 2013, end: 20140506
  2. AMLODIPINE [Concomitant]
     Route: 048
  3. METOPROLOL [Concomitant]
     Route: 048
  4. ASPIRIN [Concomitant]
     Route: 048
  5. PAXIL [Concomitant]
     Route: 048
  6. TRAZODONE [Concomitant]
     Route: 048
  7. LORAZEPAM [Concomitant]
     Route: 048

REACTIONS (2)
  - Tremor [Unknown]
  - Drug effect incomplete [Unknown]
